FAERS Safety Report 16872060 (Version 1)
Quarter: 2019Q4

REPORT INFORMATION
  Report Type: Spontaneous
  Country: CH (occurrence: CH)
  Receive Date: 20191001
  Receipt Date: 20191001
  Transmission Date: 20200122
  Serious: Yes (Hospitalization, Other)
  Sender: FDA-Public Use
  Company Number: CH-AMGEN-CHESP2019149066

PATIENT
  Age: 74 Year
  Sex: Female

DRUGS (8)
  1. BLINCYTO [Suspect]
     Active Substance: BLINATUMOMAB
     Dosage: 09 MICROGRAM, QD
     Route: 065
     Dates: start: 20190827, end: 20190830
  2. BLINCYTO [Suspect]
     Active Substance: BLINATUMOMAB
     Dosage: 112 MICROGRAM, QD
     Route: 065
     Dates: start: 201909
  3. BLINCYTO [Suspect]
     Active Substance: BLINATUMOMAB
     Indication: DIFFUSE LARGE B-CELL LYMPHOMA
     Dosage: 09 MICROGRAM, QD
     Route: 065
     Dates: start: 20190820
  4. BLINCYTO [Suspect]
     Active Substance: BLINATUMOMAB
     Dosage: 09 MICROGRAM, QD
     Route: 065
     Dates: start: 20190830
  5. BLINCYTO [Suspect]
     Active Substance: BLINATUMOMAB
     Dosage: 56 MICROGRAM, QD
     Route: 065
     Dates: start: 201909, end: 201909
  6. BLINCYTO [Suspect]
     Active Substance: BLINATUMOMAB
     Dosage: 122 MICROGRAM, QD
     Route: 065
     Dates: start: 201909
  7. BLINCYTO [Suspect]
     Active Substance: BLINATUMOMAB
     Dosage: 112 MICROGRAM, QD
     Route: 065
     Dates: start: 20190906, end: 201909
  8. BLINCYTO [Suspect]
     Active Substance: BLINATUMOMAB
     Dosage: 56 MICROGRAM
     Route: 065
     Dates: start: 201909, end: 201909

REACTIONS (3)
  - Disorientation [Recovering/Resolving]
  - Off label use [Unknown]
  - Diffuse large B-cell lymphoma [Unknown]

NARRATIVE: CASE EVENT DATE: 20190820
